FAERS Safety Report 15322810 (Version 2)
Quarter: 2018Q3

REPORT INFORMATION
  Report Type: Spontaneous
  Country: CN (occurrence: CN)
  Receive Date: 20180827
  Receipt Date: 20180829
  Transmission Date: 20181010
  Serious: Yes (Hospitalization, Other)
  Sender: FDA-Public Use
  Company Number: CN-PFIZER INC-2018340703

PATIENT
  Age: 29 Year
  Sex: Female

DRUGS (1)
  1. AZITHROMYCIN ANHYDROUS. [Suspect]
     Active Substance: AZITHROMYCIN ANHYDROUS
     Indication: OROPHARYNGEAL PAIN
     Dosage: 0.25 G, UNK
     Dates: start: 2009

REACTIONS (2)
  - Toxic epidermal necrolysis [Recovered/Resolved with Sequelae]
  - Obliterative bronchiolitis [Not Recovered/Not Resolved]
